FAERS Safety Report 18404476 (Version 1)
Quarter: 2020Q4

REPORT INFORMATION
  Report Type: Other
  Country: SE (occurrence: SE)
  Receive Date: 20201020
  Receipt Date: 20201020
  Transmission Date: 20210114
  Serious: Yes (Hospitalization)
  Sender: FDA-Public Use
  Company Number: SE-DEXPHARM-20200924

PATIENT
  Age: 75 Year
  Sex: Male

DRUGS (5)
  1. PHENOXYMETHYL-PENICILLIN [Suspect]
     Active Substance: PENICILLIN V
  2. SULFAMETHOXAZOLE/TRIMETHOPRIM [Suspect]
     Active Substance: SULFAMETHOXAZOLE\TRIMETHOPRIM
  3. DEXAMETHASONE. [Suspect]
     Active Substance: DEXAMETHASONE
  4. VALACICLOVIR [Suspect]
     Active Substance: VALACYCLOVIR HYDROCHLORIDE
  5. LENALIDOMIDE [Suspect]
     Active Substance: LENALIDOMIDE

REACTIONS (1)
  - Acute generalised exanthematous pustulosis [Recovered/Resolved]
